FAERS Safety Report 23659288 (Version 2)
Quarter: 2024Q3

REPORT INFORMATION
  Report Type: Spontaneous
  Country: US (occurrence: US)
  Receive Date: 20240321
  Receipt Date: 20240723
  Transmission Date: 20241016
  Serious: No
  Sender: MYOVANT SCIENCES
  Company Number: US-MYOVANT SCIENCES GMBH-2024MYSCI0100404

PATIENT
  Age: 35 Year
  Sex: Female

DRUGS (3)
  1. MYFEMBREE [Suspect]
     Active Substance: ESTRADIOL HEMIHYDRATE\NORETHINDRONE ACETATE\RELUGOLIX
     Indication: Endometriosis
     Dosage: UNK
     Route: 065
     Dates: end: 20240106
  2. MYFEMBREE [Suspect]
     Active Substance: ESTRADIOL HEMIHYDRATE\NORETHINDRONE ACETATE\RELUGOLIX
     Indication: Dyspareunia
  3. MYFEMBREE [Suspect]
     Active Substance: ESTRADIOL HEMIHYDRATE\NORETHINDRONE ACETATE\RELUGOLIX
     Indication: Dysmenorrhoea

REACTIONS (8)
  - Gastrointestinal disorder [Unknown]
  - Asthenia [Unknown]
  - Illness [Recovered/Resolved]
  - Heavy menstrual bleeding [Not Recovered/Not Resolved]
  - Intermenstrual bleeding [Unknown]
  - Fatigue [Unknown]
  - Anaemia [Unknown]
  - Therapy interrupted [Not Recovered/Not Resolved]

NARRATIVE: CASE EVENT DATE: 20240107
